FAERS Safety Report 6019269-5 (Version None)
Quarter: 2008Q4

REPORT INFORMATION
  Report Type: 
  Country: None (occurrence: None)
  Receive Date: 20081224
  Receipt Date: 20081218
  Transmission Date: 20090506
  Serious: Yes (Death, Life-Threatening, Hospitalization, Disabling)
  Sender: FDA-Public Use
  Company Number: ZA-JNJFOC-20081204654

PATIENT
  Sex: Male
  Weight: 66 kg

DRUGS (7)
  1. REVELLEX [Suspect]
     Route: 042
  2. REVELLEX [Suspect]
     Indication: RHEUMATOID ARTHRITIS
     Dosage: 4 INFUSIONS ADMINISTERED
     Route: 042
  3. ARAVA [Concomitant]
     Route: 048
  4. ASAMOX [Concomitant]
     Route: 048
  5. PANAFCORT [Concomitant]
     Route: 048
  6. EYE DROPS [Concomitant]
     Indication: GLAUCOMA
  7. COXFLAM [Concomitant]
     Route: 048

REACTIONS (4)
  - CARDIAC ARREST [None]
  - HYPOVOLAEMIC SHOCK [None]
  - INTESTINAL GANGRENE [None]
  - MESENTERIC ARTERY THROMBOSIS [None]
